FAERS Safety Report 20999289 (Version 1)
Quarter: 2022Q2

REPORT INFORMATION
  Report Type: Spontaneous
  Country: US (occurrence: US)
  Receive Date: 20220623
  Receipt Date: 20220623
  Transmission Date: 20220721
  Serious: Yes (Other)
  Sender: FDA-Public Use
  Company Number: US-ELI_LILLY_AND_COMPANY-US202206005702

PATIENT
  Age: 40 Year
  Sex: Male
  Weight: 140.9 kg

DRUGS (1)
  1. BEBTELOVIMAB [Suspect]
     Active Substance: BEBTELOVIMAB
     Indication: COVID-19
     Dosage: 175 MG, SINGLE
     Route: 042
     Dates: start: 20220609, end: 20220609

REACTIONS (5)
  - Throat irritation [Unknown]
  - Tachycardia [Unknown]
  - Hyperventilation [Unknown]
  - Cough [Unknown]
  - Panic attack [Unknown]

NARRATIVE: CASE EVENT DATE: 20220609
